FAERS Safety Report 10451557 (Version 1)
Quarter: 2014Q3

REPORT INFORMATION
  Report Type: Spontaneous
  Country: US (occurrence: US)
  Receive Date: 20140914
  Receipt Date: 20140914
  Transmission Date: 20150326
  Serious: No
  Sender: FDA-Public Use
  Company Number: US-ASTRAZENECA-2014SE66572

PATIENT
  Age: 54 Year
  Sex: Male
  Weight: 51.3 kg

DRUGS (9)
  1. TRAZODONE [Concomitant]
     Active Substance: TRAZODONE HYDROCHLORIDE
     Indication: SLEEP DISORDER
  2. ARIMIDEX [Suspect]
     Active Substance: ANASTROZOLE
     Route: 048
     Dates: start: 20130622
  3. DULOXETINE [Concomitant]
     Active Substance: DULOXETINE
     Indication: DEPRESSION
  4. DULOXETINE [Concomitant]
     Active Substance: DULOXETINE
     Indication: ANXIETY
  5. CETIRIZINE [Concomitant]
     Active Substance: CETIRIZINE HYDROCHLORIDE
     Indication: MULTIPLE ALLERGIES
  6. AMILORIDE [Concomitant]
     Active Substance: AMILORIDE
  7. ARIMIDEX [Suspect]
     Active Substance: ANASTROZOLE
     Dosage: SPLITTING THE ARIMIDEX TABLET AND CRUSHING IT
     Route: 048
     Dates: start: 20140622
  8. TESTOSTERONE CYPIONATE. [Concomitant]
     Active Substance: TESTOSTERONE CYPIONATE
     Dosage: 0.15 ML/30 MG EVERY THREE DAYS
  9. LORAZEPAM. [Concomitant]
     Active Substance: LORAZEPAM
     Indication: ANXIETY

REACTIONS (16)
  - Blood testosterone decreased [Unknown]
  - Muscle disorder [Unknown]
  - Decreased appetite [Unknown]
  - Intentional product misuse [Not Recovered/Not Resolved]
  - Erectile dysfunction [Unknown]
  - Oestradiol decreased [Unknown]
  - Weight decreased [Unknown]
  - Aggression [Unknown]
  - Off label use [Not Recovered/Not Resolved]
  - Abdominal discomfort [Unknown]
  - Nausea [Unknown]
  - Memory impairment [Unknown]
  - Libido decreased [Unknown]
  - Irritability [Unknown]
  - Sleep disorder [Unknown]
  - Affective disorder [Unknown]

NARRATIVE: CASE EVENT DATE: 20130622
